FAERS Safety Report 8315692-4 (Version None)
Quarter: 2012Q2

REPORT INFORMATION
  Report Type: 
  Country: None (occurrence: None)
  Receive Date: 20120426
  Receipt Date: 20120423
  Transmission Date: 20120825
  Serious: Yes (Hospitalization, Other)
  Sender: FDA-Public Use
  Company Number: PHHY2012ES020327

PATIENT
  Age: 81 Year
  Sex: Female

DRUGS (9)
  1. TORSEMIDE [Concomitant]
     Dosage: UNKNOWN
  2. TORSEMIDE [Concomitant]
     Dosage: 10 MG/24 HOURS
  3. OMEPRAZOLE [Concomitant]
     Dosage: UNKNOWN
  4. OMEPRAZOLE [Concomitant]
     Dosage: 20 MG/24 HOURS
  5. CARVEDILOL [Concomitant]
     Dosage: UNKNOWN
  6. CARVEDILOL [Concomitant]
     Dosage: 6.25 MG/24 HOURS
  7. TELMISARTAN [Concomitant]
  8. METFORMIN HCL [Suspect]
     Dosage: 850 MG, Q8H
     Route: 048
  9. ATORVASTATIN [Concomitant]

REACTIONS (15)
  - RENAL TUBULAR NECROSIS [None]
  - BRADYPHRENIA [None]
  - HYPERLACTACIDAEMIA [None]
  - COGNITIVE DISORDER [None]
  - BUNDLE BRANCH BLOCK LEFT [None]
  - RENAL FAILURE ACUTE [None]
  - BODY TEMPERATURE DECREASED [None]
  - DRUG LEVEL INCREASED [None]
  - ANURIA [None]
  - VOMITING [None]
  - DISORIENTATION [None]
  - CARDIOMEGALY [None]
  - DIARRHOEA HAEMORRHAGIC [None]
  - LACTIC ACIDOSIS [None]
  - DIABETIC NEPHROPATHY [None]
